FAERS Safety Report 8291780-6 (Version None)
Quarter: 2012Q2

REPORT INFORMATION
  Report Type: 
  Country: None (occurrence: None)
  Receive Date: 20120413
  Receipt Date: 20120331
  Transmission Date: 20120825
  Serious: Yes (Hospitalization)
  Sender: FDA-Public Use
  Company Number: 2012AP000911

PATIENT
  Age: 40 Year
  Sex: Female

DRUGS (2)
  1. ASPIRIN [Suspect]
     Dosage: 75 MG;QD 150 MG;QD
  2. CLOPIDOGREL [Suspect]
     Indication: ANTIPLATELET THERAPY
     Dosage: 75 MG;QD

REACTIONS (4)
  - HAEMOGLOBIN DECREASED [None]
  - COAGULOPATHY [None]
  - HAEMATOCRIT DECREASED [None]
  - PULMONARY ALVEOLAR HAEMORRHAGE [None]
